FAERS Safety Report 5749965-6 (Version None)
Quarter: 2008Q2

REPORT INFORMATION
  Report Type: 
  Country: None (occurrence: None)
  Receive Date: 20080527
  Receipt Date: 20080519
  Transmission Date: 20081010
  Serious: Yes (Hospitalization)
  Sender: FDA-Public Use
  Company Number: JP-ASTRAZENECA-2008AP03914

PATIENT
  Age: 60 Year
  Sex: Male

DRUGS (3)
  1. CRESTOR [Suspect]
     Indication: HYPERCHOLESTEROLAEMIA
     Dosage: DOSE UNKNOWN
     Route: 048
  2. ANTIHYPERTENSIVE [Suspect]
     Dosage: DOSE UNKNOWN
     Route: 048
  3. ALPHA BLOCKER [Suspect]
     Dosage: DOSE UNKNOWN
     Route: 048

REACTIONS (1)
  - HEPATITIS FULMINANT [None]
